FAERS Safety Report 11965584 (Version 3)
Quarter: 2016Q1

REPORT INFORMATION
  Report Type: Spontaneous
  Country: FR (occurrence: FR)
  Receive Date: 20160127
  Receipt Date: 20160208
  Transmission Date: 20160526
  Serious: Yes (Death, Other)
  Sender: FDA-Public Use
  Company Number: FR-AUROBINDO-AUR-APL-2016-00310

PATIENT
  Age: 4 Year
  Sex: Male
  Weight: 16 kg

DRUGS (3)
  1. AZITHROMYCIN ANHYDROUS. [Suspect]
     Active Substance: AZITHROMYCIN ANHYDROUS
     Indication: PRODUCT USED FOR UNKNOWN INDICATION
     Route: 065
  2. COLCHICINE. [Interacting]
     Active Substance: COLCHICINE
     Indication: PERICARDITIS
     Dosage: 2 CONSECUTIVE DAYS 8 MG OF COLCHICINE AT 0,5 MG/KG/DAY
  3. COLCHICINE. [Interacting]
     Active Substance: COLCHICINE
     Indication: PRODUCT USED FOR UNKNOWN INDICATION
     Dosage: 2 CONSECUTIVE DAYS 8 MG OF COLCHICINE
     Route: 065

REACTIONS (7)
  - Vomiting [Unknown]
  - Circulatory collapse [Unknown]
  - Toxicity to various agents [Unknown]
  - Inappropriate schedule of drug administration [Unknown]
  - Accidental poisoning [Fatal]
  - Diarrhoea [Unknown]
  - Multiple organ dysfunction syndrome [Fatal]
